FAERS Safety Report 6671404-1 (Version None)
Quarter: 2010Q2

REPORT INFORMATION
  Report Type: 
  Country: None (occurrence: None)
  Receive Date: 20100406
  Receipt Date: 20100406
  Transmission Date: 20101027
  Serious: No
  Sender: FDA-Public Use
  Company Number: None

PATIENT
  Age: 61 Year
  Sex: Female
  Weight: 90.7194 kg

DRUGS (2)
  1. SALSALATE [Suspect]
     Indication: FIBROMYALGIA
     Dosage: 2 TABLETS -1500  MG- AM AND PM PO
     Route: 048
     Dates: start: 20091121, end: 20100330
  2. SALSALATE [Suspect]
     Indication: MUSCULOSKELETAL STIFFNESS
     Dosage: 2 TABLETS -1500  MG- AM AND PM PO
     Route: 048
     Dates: start: 20091121, end: 20100330

REACTIONS (3)
  - DEAFNESS TRANSITORY [None]
  - HYPOAESTHESIA [None]
  - TINNITUS [None]
